FAERS Safety Report 5563488-9 (Version None)
Quarter: 2007Q4

REPORT INFORMATION
  Report Type: 
  Country: None (occurrence: None)
  Receive Date: 20071217
  Receipt Date: 20070621
  Transmission Date: 20080405
  Serious: No
  Sender: FDA-Public Use
  Company Number: US-ASTRAZENECA-2007UW14972

PATIENT
  Age: 53 Year
  Sex: Female
  Weight: 94.8 kg

DRUGS (13)
  1. CRESTOR [Suspect]
     Indication: BLOOD CHOLESTEROL INCREASED
     Route: 048
  2. CRESTOR [Suspect]
     Route: 048
     Dates: start: 20070407
  3. HYOSCAMINE [Concomitant]
     Indication: ABDOMINAL PAIN UPPER
  4. HYDROCHLOROTHIAZIDE [Concomitant]
  5. CYMBALTA [Concomitant]
  6. ACCUPRIL [Concomitant]
  7. CELEBREX [Concomitant]
  8. SYNTHROID [Concomitant]
  9. NEURONTIN [Concomitant]
  10. ULTRAM [Concomitant]
  11. FLEXERIL [Concomitant]
  12. LUNESTA [Concomitant]
  13. ALBUTEROL [Concomitant]

REACTIONS (2)
  - LABORATORY TEST ABNORMAL [None]
  - PAIN [None]
